FAERS Safety Report 17199221 (Version 3)
Quarter: 2021Q1

REPORT INFORMATION
  Report Type: Report from Study
  Country: None (occurrence: CA)
  Receive Date: 20191225
  Receipt Date: 20210202
  Transmission Date: 20210419
  Serious: Yes (Other)
  Sender: FDA-Public Use
  Company Number: CA-ABBVIE-19K-028-3205663-00

PATIENT
  Age: 57 Year
  Sex: Female

DRUGS (2)
  1. HUMIRA [Suspect]
     Active Substance: ADALIMUMAB
     Indication: HIDRADENITIS
     Route: 058
  2. HUMIRA [Suspect]
     Active Substance: ADALIMUMAB
     Indication: HIDRADENITIS
     Route: 058
     Dates: start: 20180309

REACTIONS (7)
  - Vaginal haemorrhage [Not Recovered/Not Resolved]
  - Uterine dilation and curettage [Unknown]
  - Thrombosis [Not Recovered/Not Resolved]
  - Product dispensing error [Unknown]
  - Acne [Unknown]
  - Pain in extremity [Unknown]
  - Hidradenitis [Unknown]

NARRATIVE: CASE EVENT DATE: 201905
